FAERS Safety Report 6356635-2 (Version None)
Quarter: 2009Q3

REPORT INFORMATION
  Report Type: 
  Country: None (occurrence: None)
  Receive Date: 20090910
  Receipt Date: 20090910
  Transmission Date: 20100115
  Serious: Yes (Life-Threatening)
  Sender: FDA-Public Use
  Company Number: None

PATIENT
  Age: 68 Year
  Sex: Female
  Weight: 100 kg

DRUGS (6)
  1. PROTAMINE SULFATE INJ [Suspect]
     Indication: CARDIAC OPERATION
     Dosage: 250 MG X 2 IV BOLUS 2 DOSES
     Route: 040
     Dates: start: 20090806, end: 20090806
  2. HEPARIN [Concomitant]
  3. DOPAMINE HCL [Concomitant]
  4. EPINEPHRINE [Concomitant]
  5. AMINOCAPROIC ACID [Concomitant]
  6. FENTANYL TRANSDERMAL SYSTEM [Concomitant]

REACTIONS (2)
  - BRADYCARDIA [None]
  - DILATATION VENTRICULAR [None]
